FAERS Safety Report 17096682 (Version 1)
Quarter: 2019Q4

REPORT INFORMATION
  Report Type: Spontaneous
  Country: US (occurrence: US)
  Receive Date: 20191202
  Receipt Date: 20191202
  Transmission Date: 20200122
  Serious: No
  Sender: FDA-Public Use
  Company Number: US-TEVA-2019-US-1145771

PATIENT
  Sex: Female

DRUGS (1)
  1. ENOXAPARIN SODIUM INJECTION USP [Suspect]
     Active Substance: ENOXAPARIN SODIUM
     Dosage: 40 MG/0.4 ML
     Route: 065
     Dates: start: 201908

REACTIONS (2)
  - Skin mass [Unknown]
  - Contusion [Unknown]

NARRATIVE: CASE EVENT DATE: 201909
